FAERS Safety Report 15587034 (Version 1)
Quarter: 2018Q4

REPORT INFORMATION
  Report Type: Spontaneous
  Country: CN (occurrence: CN)
  Receive Date: 20181105
  Receipt Date: 20181105
  Transmission Date: 20190205
  Serious: Yes (Other)
  Sender: FDA-Public Use
  Company Number: CN-JUBILANT CADISTA PHARMACEUTICALS-2018JUB00447

PATIENT
  Sex: Female

DRUGS (1)
  1. PREDNISONE. [Suspect]
     Active Substance: PREDNISONE
     Indication: IMMUNE THROMBOCYTOPENIC PURPURA
     Dosage: 1 MG/KG, 1X/DAY
     Route: 065

REACTIONS (2)
  - Pre-eclampsia [Unknown]
  - Exposure during pregnancy [Unknown]
